FAERS Safety Report 5498286-8 (Version None)
Quarter: 2007Q4

REPORT INFORMATION
  Report Type: 
  Country: None (occurrence: None)
  Receive Date: 20071025
  Receipt Date: 20070604
  Transmission Date: 20080405
  Serious: No
  Sender: FDA-Public Use
  Company Number: A0648716A

PATIENT
  Age: 78 Year
  Sex: Male
  Weight: 116.8 kg

DRUGS (5)
  1. ADVAIR DISKUS 100/50 [Suspect]
     Indication: CHRONIC OBSTRUCTIVE PULMONARY DISEASE
     Route: 055
  2. NEBULIZER [Concomitant]
  3. INHALER [Concomitant]
  4. EYE DROPS [Concomitant]
  5. ASPIRIN [Concomitant]

REACTIONS (4)
  - ARTHRALGIA [None]
  - ARTHRITIS [None]
  - COUGH [None]
  - THROAT IRRITATION [None]
